FAERS Safety Report 4749012-9 (Version None)
Quarter: 2005Q3

REPORT INFORMATION
  Report Type: 
  Country: None (occurrence: None)
  Receive Date: 20050817
  Receipt Date: 20050804
  Transmission Date: 20060218
  Serious: Yes (Hospitalization)
  Sender: FDA-Public Use
  Company Number: 2005112248

PATIENT
  Age: 40 Year
  Sex: Female

DRUGS (2)
  1. ALDACTONE [Suspect]
     Indication: ILL-DEFINED DISORDER
     Dosage: (50 MG,), ORAL
     Route: 048
  2. RIFADIN [Suspect]
     Indication: ILL-DEFINED DISORDER
     Dosage: 600 MG (300 MG, EVERY
     Dates: start: 20050428

REACTIONS (5)
  - ASTHENIA [None]
  - DRUG INTERACTION [None]
  - DYSPNOEA EXERTIONAL [None]
  - HYPOKALAEMIA [None]
  - PALPITATIONS [None]
